FAERS Safety Report 7114333-1 (Version None)
Quarter: 2010Q4

REPORT INFORMATION
  Report Type: 
  Country: None (occurrence: None)
  Receive Date: 20101119
  Receipt Date: 20101109
  Transmission Date: 20110411
  Serious: Yes (Other)
  Sender: FDA-Public Use
  Company Number: CA-PFIZER INC-2010145764

PATIENT
  Age: 63 Year
  Sex: Male

DRUGS (5)
  1. PRISTIQ [Suspect]
     Indication: DEPRESSION SUICIDAL
     Dosage: 50 MG, 1X/DAY
     Dates: start: 20101001, end: 20101105
  2. PRISTIQ [Suspect]
     Dosage: 100 MG, 1X/DAY
     Dates: start: 20101106
  3. RAMIPRIL [Concomitant]
     Dosage: UNK
  4. HYDROCHLOROTHIAZIDE [Concomitant]
     Dosage: UNK
  5. METFORMIN [Concomitant]
     Dosage: UNK

REACTIONS (4)
  - ABNORMAL BEHAVIOUR [None]
  - ANGER [None]
  - SUICIDAL IDEATION [None]
  - THINKING ABNORMAL [None]
